FAERS Safety Report 4414703-6 (Version None)
Quarter: 2004Q3

REPORT INFORMATION
  Report Type: 
  Country: None (occurrence: None)
  Receive Date: 20040804
  Receipt Date: 20030519
  Transmission Date: 20050211
  Serious: No
  Sender: FDA-Public Use
  Company Number: US-BRISTOL-MYERS SQUIBB COMPANY-12281044

PATIENT
  Age: 76 Year
  Sex: Female
  Weight: 72 kg

DRUGS (13)
  1. GLUCOVANCE [Suspect]
     Indication: DIABETES MELLITUS
     Route: 048
  2. FEMHRT [Concomitant]
  3. ZYRTEC [Concomitant]
  4. THYROID TAB [Concomitant]
  5. PRAVACHOL [Concomitant]
  6. NIACIN [Concomitant]
  7. ALDACTAZIDE [Concomitant]
  8. ARICEPT [Concomitant]
  9. WEIGHT SMART [Concomitant]
  10. CALCIUM [Concomitant]
  11. MICRO-K [Concomitant]
  12. ASPIRIN [Concomitant]
  13. ADVAIR DISKUS 100/50 [Concomitant]

REACTIONS (1)
  - BLOOD GLUCOSE INCREASED [None]
